FAERS Safety Report 23445335 (Version 1)
Quarter: 2024Q1

REPORT INFORMATION
  Report Type: Report from Study
  Country: US (occurrence: US)
  Receive Date: 20240126
  Receipt Date: 20240126
  Transmission Date: 20240409
  Serious: Yes (Other)
  Sender: FDA-Public Use
  Company Number: US-JNJFOC-20240149808

PATIENT
  Age: 84 Year
  Sex: Female

DRUGS (1)
  1. RIVAROXABAN [Suspect]
     Active Substance: RIVAROXABAN
     Indication: Cardiac failure congestive
     Route: 048

REACTIONS (3)
  - Haemorrhage [Unknown]
  - Left atrial appendage closure implant [Unknown]
  - Off label use [Unknown]
